FAERS Safety Report 12913154 (Version 1)
Quarter: 2016Q4

REPORT INFORMATION
  Report Type: Spontaneous
  Country: None (occurrence: US)
  Receive Date: 20161104
  Receipt Date: 20161104
  Transmission Date: 20170207
  Serious: No
  Sender: FDA-Public Use
  Company Number: US-ANACOR-2016ANA00250

PATIENT
  Age: 53 Year
  Sex: Female
  Weight: 62.59 kg

DRUGS (1)
  1. KERYDIN [Suspect]
     Active Substance: TAVABOROLE
     Indication: ONYCHOMYCOSIS
     Dosage: A LIBERAL AMOUNT APPLIED ONCE OR TWICE DAILY
     Route: 061
     Dates: start: 201603, end: 20160801

REACTIONS (9)
  - Nail discolouration [Not Recovered/Not Resolved]
  - Application site irritation [Recovered/Resolved]
  - Nail growth abnormal [Not Recovered/Not Resolved]
  - Onychomadesis [Not Recovered/Not Resolved]
  - Application site exfoliation [Recovered/Resolved]
  - Drug ineffective [Not Recovered/Not Resolved]
  - Onychomycosis [Not Recovered/Not Resolved]
  - Application site inflammation [Recovered/Resolved]
  - Application site erythema [Recovered/Resolved]

NARRATIVE: CASE EVENT DATE: 201604
